FAERS Safety Report 5204584-5 (Version None)
Quarter: 2007Q1

REPORT INFORMATION
  Report Type: 
  Country: None (occurrence: None)
  Receive Date: 20070110
  Receipt Date: 20060516
  Transmission Date: 20070707
  Serious: No
  Sender: FDA-Public Use
  Company Number: US-BRISTOL-MYERS SQUIBB COMPANY-13378823

PATIENT
  Age: 14 Year
  Sex: Male
  Weight: 73 kg

DRUGS (4)
  1. ABILIFY [Suspect]
     Indication: POST-TRAUMATIC STRESS DISORDER
     Dosage: INCREASED TO 10 MG/D  AFTER A FEW WEEKS -} INCREASED TO 15 MG/D M-F AND + 7.5 MG/D S-S (15-MAR-2006)
     Route: 048
     Dates: start: 20050901
  2. ABILIFY [Suspect]
     Indication: ASPERGER'S DISORDER
     Dosage: INCREASED TO 10 MG/D  AFTER A FEW WEEKS -} INCREASED TO 15 MG/D M-F AND + 7.5 MG/D S-S (15-MAR-2006)
     Route: 048
     Dates: start: 20050901
  3. ABILIFY [Suspect]
     Indication: OPPOSITIONAL DEFIANT DISORDER
     Dosage: INCREASED TO 10 MG/D  AFTER A FEW WEEKS -} INCREASED TO 15 MG/D M-F AND + 7.5 MG/D S-S (15-MAR-2006)
     Route: 048
     Dates: start: 20050901
  4. CLONIDINE [Concomitant]

REACTIONS (2)
  - ACNE [None]
  - BREAST ENLARGEMENT [None]
